FAERS Safety Report 17999168 (Version 1)
Quarter: 2020Q3

REPORT INFORMATION
  Report Type: Spontaneous
  Country: US (occurrence: US)
  Receive Date: 20200708
  Receipt Date: 20200708
  Transmission Date: 20201103
  Serious: Yes (Life-Threatening, Disabling)
  Sender: FDA-Public Use
  Company Number: None

PATIENT
  Age: 30 Year
  Sex: Male
  Weight: 87.75 kg

DRUGS (1)
  1. CIPROFLOXACIN. [Suspect]
     Active Substance: CIPROFLOXACIN
     Indication: PROSTATITIS
     Route: 048
     Dates: start: 20200203, end: 20200320

REACTIONS (7)
  - Disability [None]
  - Feeling abnormal [None]
  - Gait inability [None]
  - Tendonitis [None]
  - Fatigue [None]
  - Toxicity to various agents [None]
  - Arthralgia [None]

NARRATIVE: CASE EVENT DATE: 20200220
